FAERS Safety Report 4672395-5 (Version None)
Quarter: 2005Q2

REPORT INFORMATION
  Report Type: 
  Country: None (occurrence: None)
  Receive Date: 20050524
  Receipt Date: 20050512
  Transmission Date: 20051028
  Serious: Yes (Hospitalization, Other)
  Sender: FDA-Public Use
  Company Number: US-JNJFOC-20050503292

PATIENT
  Sex: Female
  Weight: 86.18 kg

DRUGS (19)
  1. INFLIXIMAB [Suspect]
     Indication: RHEUMATOID ARTHRITIS
     Route: 042
  2. PREDNISONE [Concomitant]
     Dosage: 20 - 40 MG DAILY
  3. ALLEGRA [Concomitant]
  4. MOBIC [Concomitant]
  5. ARAVA [Concomitant]
  6. FOLIC ACID [Concomitant]
  7. ZOLOFT [Concomitant]
  8. ULTRAM [Concomitant]
     Dosage: 50 - 100 MG DAILY
  9. VICODIN [Concomitant]
  10. VICODIN [Concomitant]
  11. MULTI-VITAMINS [Concomitant]
  12. MULTI-VITAMINS [Concomitant]
  13. MULTI-VITAMINS [Concomitant]
  14. MULTI-VITAMINS [Concomitant]
  15. MULTI-VITAMINS [Concomitant]
  16. MULTI-VITAMINS [Concomitant]
  17. MULTI-VITAMINS [Concomitant]
  18. MULTI-VITAMINS [Concomitant]
  19. CALCIUM GLUCONATE [Concomitant]

REACTIONS (13)
  - ABDOMINAL PAIN [None]
  - BREAST CANCER [None]
  - BREAST CANCER FEMALE [None]
  - CORONARY ARTERY DISEASE [None]
  - DIARRHOEA [None]
  - ESCHERICHIA INFECTION [None]
  - HYPOVOLAEMIA [None]
  - MYOCARDIAL INFARCTION [None]
  - NAUSEA [None]
  - RENAL FAILURE ACUTE [None]
  - UROSEPSIS [None]
  - VENTRICULAR DYSFUNCTION [None]
  - VOMITING [None]
